FAERS Safety Report 19057362 (Version 1)
Quarter: 2021Q1

REPORT INFORMATION
  Report Type: Spontaneous
  Country: US (occurrence: US)
  Receive Date: 20210324
  Receipt Date: 20210324
  Transmission Date: 20210420
  Serious: Yes (Hospitalization, Other)
  Sender: FDA-Public Use
  Company Number: US-009507513-2103USA006248

PATIENT
  Age: 50 Year
  Sex: Male
  Weight: 98.87 kg

DRUGS (4)
  1. KEYTRUDA [Suspect]
     Active Substance: PEMBROLIZUMAB
     Indication: METASTATIC RENAL CELL CARCINOMA
     Dosage: 200 MG, EVERY 21 DAYS
     Route: 042
     Dates: start: 20200224
  2. ZOFRAN [Concomitant]
     Active Substance: ONDANSETRON HYDROCHLORIDE
     Dosage: UNK, PRN
  3. ZOMETA [Concomitant]
     Active Substance: ZOLEDRONIC ACID
     Dosage: AS NEEDED
     Route: 042
  4. MOTRIN (NAPROXEN) [Concomitant]
     Dosage: AS NEEDED

REACTIONS (1)
  - Myelitis transverse [Unknown]

NARRATIVE: CASE EVENT DATE: 20210302
